FAERS Safety Report 14233999 (Version 1)
Quarter: 2017Q4

REPORT INFORMATION
  Report Type: Spontaneous
  Country: US (occurrence: US)
  Receive Date: 20171129
  Receipt Date: 20171129
  Transmission Date: 20180321
  Serious: No
  Sender: FDA-Public Use
  Company Number: US-JNJFOC-20171110943

PATIENT
  Age: 30 Year
  Sex: Female
  Weight: 78.47 kg

DRUGS (1)
  1. TYLENOL EXTRA STRENGTH [Suspect]
     Active Substance: ACETAMINOPHEN
     Indication: HEADACHE
     Route: 048
     Dates: start: 20171108

REACTIONS (2)
  - Product package associated injury [Not Recovered/Not Resolved]
  - Product outer packaging issue [Unknown]
